FAERS Safety Report 21215852 (Version 1)
Quarter: 2022Q3

REPORT INFORMATION
  Report Type: Spontaneous
  Country: US (occurrence: None)
  Receive Date: 20220815
  Receipt Date: 20220815
  Transmission Date: 20221026
  Serious: Yes (Disabling)
  Sender: FDA-Public Use
  Company Number: None

PATIENT
  Age: 64 Year
  Sex: Female
  Weight: 58.5 kg

DRUGS (3)
  1. PAXLOVID [Suspect]
     Active Substance: NIRMATRELVIR\RITONAVIR
     Indication: COVID-19
     Dosage: OTHER QUANTITY : 3 TABLET(S);?FREQUENCY : TWICE A DAY;?
     Route: 048
     Dates: start: 20220810, end: 20220811
  2. NALTRAXONE [Concomitant]
  3. GABAPENTIN [Concomitant]
     Active Substance: GABAPENTIN

REACTIONS (10)
  - Dysgeusia [None]
  - Tongue discolouration [None]
  - Pharyngeal erythema [None]
  - Dysphagia [None]
  - Back pain [None]
  - Headache [None]
  - Abdominal pain upper [None]
  - Ageusia [None]
  - Oropharyngeal pain [None]
  - Nausea [None]

NARRATIVE: CASE EVENT DATE: 20220810
